FAERS Safety Report 12249466 (Version 1)
Quarter: 2016Q2

REPORT INFORMATION
  Report Type: Spontaneous
  Country: US (occurrence: US)
  Receive Date: 20160408
  Receipt Date: 20160408
  Transmission Date: 20160815
  Serious: Yes (Disabling)
  Sender: FDA-Public Use
  Company Number: US-PROCTER_AND_GAMBLE-GS16030065

PATIENT
  Sex: Male

DRUGS (1)
  1. OLDSPICEAPDO+BSPRAY [Suspect]
     Active Substance: ALUMINUM CHLOROHYDRATE OR ALUMINUM ZIRCONIUM TETRACHLOROHYDREX GLY
     Dosage: UNK
     Route: 061

REACTIONS (3)
  - Skin burning sensation [Unknown]
  - Skin discomfort [Unknown]
  - Chemical burn of skin [Unknown]
